FAERS Safety Report 25281103 (Version 1)
Quarter: 2025Q2

REPORT INFORMATION
  Report Type: Spontaneous
  Country: US (occurrence: US)
  Receive Date: 20250508
  Receipt Date: 20250508
  Transmission Date: 20250716
  Serious: No
  Sender: ELI LILLY AND COMPANY
  Company Number: US-ELI_LILLY_AND_COMPANY-US202505002635

PATIENT
  Age: 33 Year
  Sex: Male

DRUGS (2)
  1. TALTZ [Suspect]
     Active Substance: IXEKIZUMAB
     Indication: Product used for unknown indication
     Route: 065
     Dates: start: 20250415
  2. TALTZ [Suspect]
     Active Substance: IXEKIZUMAB
     Route: 065
     Dates: start: 20250429

REACTIONS (4)
  - Injection site rash [Unknown]
  - Injection site swelling [Unknown]
  - Injection site erythema [Unknown]
  - Injection site warmth [Unknown]

NARRATIVE: CASE EVENT DATE: 20250401
